FAERS Safety Report 4716764-3 (Version None)
Quarter: 2005Q3

REPORT INFORMATION
  Report Type: 
  Country: None (occurrence: None)
  Receive Date: 20050714
  Receipt Date: 20050701
  Transmission Date: 20060218
  Serious: Yes (Death)
  Sender: FDA-Public Use
  Company Number: 2005080520

PATIENT
  Age: 37 Year
  Sex: Male

DRUGS (1)
  1. GEODON [Suspect]
     Indication: ILL-DEFINED DISORDER
     Dates: start: 20050501, end: 20050501

REACTIONS (5)
  - CARBON MONOXIDE POISONING [None]
  - COMPLETED SUICIDE [None]
  - FAMILY STRESS [None]
  - SICK RELATIVE [None]
  - STRESS [None]
